FAERS Safety Report 4980105-7 (Version None)
Quarter: 2006Q2

REPORT INFORMATION
  Report Type: 
  Country: None (occurrence: None)
  Receive Date: 20060421
  Receipt Date: 20060105
  Transmission Date: 20061013
  Serious: Yes (Death, Hospitalization)
  Sender: FDA-Public Use
  Company Number: US-MERCK-0601USA00585

PATIENT
  Age: 81 Year
  Sex: Female
  Weight: 75 kg

DRUGS (8)
  1. VIOXX [Suspect]
     Indication: ANALGESIC EFFECT
     Route: 048
     Dates: start: 20030103, end: 20031226
  2. VIOXX [Suspect]
     Route: 048
     Dates: start: 20030103, end: 20031226
  3. CELEBREX [Concomitant]
     Indication: ARTHRITIS
     Route: 065
     Dates: start: 20030208, end: 20031226
  4. ATENOLOL [Concomitant]
     Indication: HYPERTENSION
     Route: 065
  5. PROMETHAZINE [Concomitant]
     Indication: HYPERSENSITIVITY
     Route: 065
  6. HYDROCODONE BITARTRATE [Concomitant]
     Indication: PAIN
     Route: 065
     Dates: end: 20031226
  7. ACETAMINOPHEN AND PROPOXYPHENE NAPSYLATE [Concomitant]
     Indication: PAIN
     Route: 065
     Dates: start: 20031226
  8. ADVIL [Concomitant]
     Indication: HEADACHE
     Route: 065
     Dates: start: 20030208, end: 20031226

REACTIONS (4)
  - ACUTE MYOCARDIAL INFARCTION [None]
  - CARDIAC MURMUR [None]
  - HYPERTENSION [None]
  - TOE DEFORMITY [None]
